FAERS Safety Report 13362792 (Version 2)
Quarter: 2020Q2

REPORT INFORMATION
  Report Type: Report from Study
  Country: None (occurrence: US)
  Receive Date: 20170323
  Receipt Date: 20200512
  Transmission Date: 20200713
  Serious: Yes (Other)
  Sender: FDA-Public Use
  Company Number: US-ABBVIE-17K-163-1911977-00

PATIENT
  Sex: Male

DRUGS (2)
  1. HUMIRA [Suspect]
     Active Substance: ADALIMUMAB
     Indication: PSORIASIS
     Route: 058
     Dates: start: 2010
  2. HUMIRA [Suspect]
     Active Substance: ADALIMUMAB
     Indication: PSORIATIC ARTHROPATHY
     Route: 058

REACTIONS (7)
  - Substance dependence [Unknown]
  - Hepatitis C [Unknown]
  - Abdominal discomfort [Unknown]
  - Spinal operation [Unknown]
  - Psoriasis [Not Recovered/Not Resolved]
  - Nausea [Unknown]
  - Psoriatic arthropathy [Unknown]
